FAERS Safety Report 4890715-3 (Version None)
Quarter: 2006Q1

REPORT INFORMATION
  Report Type: 
  Country: None (occurrence: None)
  Receive Date: 20060125
  Receipt Date: 20030425
  Transmission Date: 20060701
  Serious: Yes (Other)
  Sender: FDA-Public Use
  Company Number: US-BRISTOL-MYERS SQUIBB COMPANY-12258737

PATIENT
  Age: 30 Year
  Sex: Male

DRUGS (9)
  1. STADOL [Suspect]
     Indication: MIGRAINE
     Route: 045
     Dates: start: 19970804, end: 20000601
  2. STADOL [Suspect]
     Indication: PAIN
     Route: 045
     Dates: start: 19970804, end: 20000601
  3. PROMETHAZINE [Concomitant]
  4. PROPOXYPHENE HCL+APAP+CAFFEINE [Concomitant]
  5. ULTRAM [Concomitant]
  6. DIPHENHYDRAMINE [Concomitant]
  7. DEPAKOTE [Concomitant]
  8. PROPRANOLOL [Concomitant]
  9. HYDROCODONE + ACETAMINOPHEN [Concomitant]

REACTIONS (1)
  - DEPENDENCE [None]
